FAERS Safety Report 8112008-3 (Version None)
Quarter: 2011Q4

REPORT INFORMATION
  Report Type: 
  Country: None (occurrence: None)
  Receive Date: 20111223
  Receipt Date: 20110928
  Transmission Date: 20120403
  Serious: Yes (Other)
  Sender: FDA-Public Use
  Company Number: PHEH2011US03670

PATIENT
  Age: 69 Year
  Sex: Female

DRUGS (6)
  1. GLIMEPIRIDE [Concomitant]
  2. DILTIAZEM [Concomitant]
  3. LASIX [Concomitant]
  4. COREG [Concomitant]
  5. FEMARA [Suspect]
     Indication: BREAST CANCER
     Dosage: 2.5 MG, QD, ORAL
     Route: 048
     Dates: start: 20100120, end: 20110214
  6. SOTALOL HCL [Concomitant]

REACTIONS (2)
  - ARTHRITIS [None]
  - ARTHRALGIA [None]
